FAERS Safety Report 4450502-7 (Version None)
Quarter: 2004Q3

REPORT INFORMATION
  Report Type: 
  Country: None (occurrence: None)
  Receive Date: 20040914
  Receipt Date: 20040909
  Transmission Date: 20050211
  Serious: Yes (Other)
  Sender: FDA-Public Use
  Company Number: HQWYE127318MAR03

PATIENT
  Sex: Male

DRUGS (4)
  1. DIMETAPP [Suspect]
     Dosage: ORAL
     Route: 048
  2. ALKA-SELTZER PLUS COLD (ACETYLSALICYLIC ACID/CHLORPHENAMINE MALEATE/PH [Suspect]
     Dosage: ORAL
     Route: 048
  3. NYQUIL (DEXTROMETHORPHAN HYDROBROMIDE/DOXYLAMINE SUCCINATE/EPHEDRINE S [Suspect]
     Dosage: ORAL
     Route: 048
  4. THERAFLU (CAFFEINE/CODEINE PHOSPHATE/PARACETAMOL/PIPERYLONE MALEATE) [Suspect]
     Dosage: ORAL
     Route: 048

REACTIONS (1)
  - CEREBROVASCULAR ACCIDENT [None]
